FAERS Safety Report 21973205 (Version 1)
Quarter: 2023Q1

REPORT INFORMATION
  Report Type: Spontaneous
  Country: FR (occurrence: FR)
  Receive Date: 20230209
  Receipt Date: 20230209
  Transmission Date: 20230417
  Serious: Yes (Life-Threatening)
  Sender: FDA-Public Use
  Company Number: None

PATIENT
  Age: 57 Year
  Sex: Male
  Weight: 92.7 kg

DRUGS (5)
  1. OXYCODONE HYDROCHLORIDE [Suspect]
     Active Substance: OXYCODONE HYDROCHLORIDE
     Indication: Arthralgia
     Dosage: 175 MILLIGRAM (1 TOTAL), 15MG 16/150 MG 17/1 70 MG 18/1 40 MG 19/1
     Route: 048
     Dates: start: 20230116, end: 20230119
  2. KARDEGIC [Concomitant]
     Active Substance: ASPIRIN DL-LYSINE
     Indication: Product used for unknown indication
     Dosage: 1 DOSAGE FORM, DAILY
  3. BISOPROLOL FUMARATE\PERINDOPRIL ARGININE [Concomitant]
     Active Substance: BISOPROLOL FUMARATE\PERINDOPRIL ARGININE
     Indication: Product used for unknown indication
     Dosage: 1 DOSAGE FORM, DAILY
  4. ATORVASTATIN [Concomitant]
     Active Substance: ATORVASTATIN
     Indication: Product used for unknown indication
     Dosage: 80 MILLIGRAM, DAILY
  5. TICAGRELOR [Concomitant]
     Active Substance: TICAGRELOR
     Indication: Product used for unknown indication
     Dosage: 90 MILLIGRAM, DAILY

REACTIONS (4)
  - Urinary retention [Recovered/Resolved]
  - Coma [Recovered/Resolved]
  - Overdose [Recovered/Resolved]
  - Constipation [Recovered/Resolved]

NARRATIVE: CASE EVENT DATE: 20230118
